FAERS Safety Report 10919353 (Version 1)
Quarter: 2015Q1

REPORT INFORMATION
  Report Type: Spontaneous
  Country: US (occurrence: US)
  Receive Date: 20150316
  Receipt Date: 20150316
  Transmission Date: 20150721
  Serious: Yes (Other)
  Sender: FDA-Public Use
  Company Number: ALCN2015US001701

PATIENT

DRUGS (1)
  1. ILEVRO [Suspect]
     Active Substance: NEPAFENAC
     Indication: PTERYGIUM
     Dosage: 1 GTT, QD
     Route: 047

REACTIONS (2)
  - Product use issue [Recovered/Resolved]
  - Ulcerative keratitis [Recovered/Resolved]
